FAERS Safety Report 11828305 (Version 2)
Quarter: 2015Q4

REPORT INFORMATION
  Report Type: Report from Study
  Country: TW (occurrence: TW)
  Receive Date: 20151211
  Receipt Date: 20151222
  Transmission Date: 20160305
  Serious: Yes (Hospitalization)
  Sender: FDA-Public Use
  Company Number: TW-INCYTE CORPORATION-2015IN006436

PATIENT
  Age: 74 Year
  Sex: Female
  Weight: 55 kg

DRUGS (11)
  1. JAKAFI [Suspect]
     Active Substance: RUXOLITINIB
     Indication: MYELOFIBROSIS
     Dosage: 20 MG
     Route: 048
     Dates: start: 20140619
  2. PIPERACILLIN [Concomitant]
     Active Substance: PIPERACILLIN
     Indication: PRODUCT USED FOR UNKNOWN INDICATION
     Dosage: 8 G, QD
     Route: 042
     Dates: start: 20151127, end: 20151205
  3. CEFTRIAXONE. [Concomitant]
     Active Substance: CEFTRIAXONE
     Indication: PRODUCT USED FOR UNKNOWN INDICATION
     Dosage: 2 MG, QD
     Route: 042
     Dates: start: 20151122, end: 20151127
  4. ACETAMINOPHEN. [Concomitant]
     Active Substance: ACETAMINOPHEN
     Indication: PRODUCT USED FOR UNKNOWN INDICATION
     Dosage: 2000 MG, QD
     Route: 048
     Dates: start: 20151122, end: 20151205
  5. TEICOPLANIN [Concomitant]
     Active Substance: TEICOPLANIN
     Indication: PRODUCT USED FOR UNKNOWN INDICATION
     Dosage: 200 MG, QD
     Route: 048
     Dates: start: 20151122, end: 20151127
  6. METRONIDAZOLE. [Concomitant]
     Active Substance: METRONIDAZOLE
     Indication: PRODUCT USED FOR UNKNOWN INDICATION
     Dosage: 1500 MG, QD
     Route: 042
     Dates: start: 20151122, end: 20151205
  7. ACETAMINOPHEN. [Concomitant]
     Active Substance: ACETAMINOPHEN
     Dosage: 2000 MG, QD
     Route: 048
     Dates: start: 20151122, end: 20151205
  8. CEFTRIAXONE. [Concomitant]
     Active Substance: CEFTRIAXONE
     Dosage: 2 MG, QD
     Route: 042
     Dates: start: 20151122, end: 20151127
  9. TEICOPLANIN [Concomitant]
     Active Substance: TEICOPLANIN
     Dosage: 200 MG, QD
     Route: 048
     Dates: start: 20151122, end: 20151127
  10. FLOMOXEF [Concomitant]
     Active Substance: FLOMOXEF
     Indication: PRODUCT USED FOR UNKNOWN INDICATION
     Dosage: 3 G, QD
     Route: 042
     Dates: start: 20151130, end: 20151205
  11. METRONIDAZOLE. [Concomitant]
     Active Substance: METRONIDAZOLE
     Dosage: 1500 MG, QD
     Route: 042
     Dates: start: 20151122, end: 20151205

REACTIONS (21)
  - Abscess [Unknown]
  - Abdominal distension [Unknown]
  - Myelocyte count increased [Unknown]
  - Leukocytosis [Unknown]
  - Appendicitis perforated [Recovered/Resolved]
  - Pain [Unknown]
  - Pelvic fluid collection [Unknown]
  - Abdominal pain lower [Not Recovered/Not Resolved]
  - Spinal osteoarthritis [Unknown]
  - Asthenia [Unknown]
  - Red blood cell count decreased [Unknown]
  - Blood glucose increased [Unknown]
  - Splenomegaly [Unknown]
  - Lymphocyte count decreased [Unknown]
  - C-reactive protein increased [Recovering/Resolving]
  - Tenderness [Unknown]
  - Renal cyst [Unknown]
  - Bone density increased [Unknown]
  - Aortic calcification [Unknown]
  - Pyrexia [Unknown]
  - White blood cell count decreased [Unknown]

NARRATIVE: CASE EVENT DATE: 20151122
